FAERS Safety Report 24167587 (Version 1)
Quarter: 2024Q3

REPORT INFORMATION
  Report Type: Spontaneous
  Country: NL (occurrence: NL)
  Receive Date: 20240802
  Receipt Date: 20240802
  Transmission Date: 20241017
  Serious: Yes (Other)
  Sender: SANDOZ
  Company Number: NL-009507513-2407NLD014293

PATIENT
  Age: 44 Year
  Sex: Male

DRUGS (6)
  1. 4 On [Concomitant]
     Indication: Product used for unknown indication
     Dosage: UNK
     Route: 065
  2. A CITALOPRAM [Concomitant]
     Indication: Product used for unknown indication
     Dosage: UNK
     Route: 065
  3. CISPLATIN [Concomitant]
     Active Substance: CISPLATIN
     Indication: Product used for unknown indication
     Dosage: UNK
     Route: 065
  4. D e x [Concomitant]
     Indication: Product used for unknown indication
     Dosage: UNK
     Route: 065
  5. APREPITANT [Interacting]
     Active Substance: APREPITANT
     Indication: Prophylaxis of nausea and vomiting
     Dosage: UNK
     Route: 048
  6. QUETIAPINE [Interacting]
     Active Substance: QUETIAPINE
     Indication: Product used for unknown indication
     Dosage: UNK
     Route: 065

REACTIONS (4)
  - Dehydration [Unknown]
  - Renal impairment [Unknown]
  - Drug interaction [Unknown]
  - Somnolence [Unknown]
